FAERS Safety Report 6626286-0 (Version None)
Quarter: 2010Q1

REPORT INFORMATION
  Report Type: 
  Country: None (occurrence: None)
  Receive Date: 20100310
  Receipt Date: 20090514
  Transmission Date: 20100710
  Serious: No
  Sender: FDA-Public Use
  Company Number: US-ABBOTT-08P-163-0456214-00

PATIENT
  Sex: Female

DRUGS (4)
  1. LUPRON [Suspect]
     Indication: ENDOMETRIOSIS
     Dosage: AS NEEDED ONCE EVERY THREE MONTHS FOR SIX MONTHS (11.25 MG, FOR 12 MONTHS) (1 IN 3 M)
     Route: 030
     Dates: start: 20080516, end: 20080530
  2. LUPRON [Suspect]
     Indication: ANAEMIA
  3. LUPRON [Suspect]
     Indication: DYSMENORRHOEA
  4. LUPRON [Suspect]
     Indication: AMENORRHOEA

REACTIONS (3)
  - HEADACHE [None]
  - HOT FLUSH [None]
  - MEDICATION ERROR [None]
